FAERS Safety Report 15156456 (Version 1)
Quarter: 2018Q3

REPORT INFORMATION
  Report Type: Spontaneous
  Country: US (occurrence: US)
  Receive Date: 20180717
  Receipt Date: 20180717
  Transmission Date: 20181010
  Serious: No
  Sender: FDA-Public Use
  Company Number: US-BAUSCH-BL-2017-026235

PATIENT
  Sex: Female

DRUGS (3)
  1. XIFAXAN [Suspect]
     Active Substance: RIFAXIMIN
     Indication: PRODUCT USED FOR UNKNOWN INDICATION
     Dosage: PROBABLY THREE MONTHS
     Route: 065
     Dates: start: 201705
  2. WELLBUTRIN [Suspect]
     Active Substance: BUPROPION HYDROCHLORIDE
     Dosage: HAD CUT DOWN THE DOSE OF WELLBUTRIN TO HALF NOW
     Route: 065
     Dates: start: 201708
  3. WELLBUTRIN [Suspect]
     Active Substance: BUPROPION HYDROCHLORIDE
     Indication: PRODUCT USED FOR UNKNOWN INDICATION
     Dosage: PROBABLY THREE MONTHS
     Route: 065
     Dates: start: 201705

REACTIONS (3)
  - Dizziness [Unknown]
  - Diarrhoea [Unknown]
  - Salmonellosis [Unknown]

NARRATIVE: CASE EVENT DATE: 2017
